FAERS Safety Report 9749663 (Version 1)
Quarter: 2013Q4

REPORT INFORMATION
  Report Type: Spontaneous
  Country: US (occurrence: US)
  Receive Date: 20131212
  Receipt Date: 20131212
  Transmission Date: 20140711
  Serious: No
  Sender: FDA-Public Use
  Company Number: US-BAXTER-2013BAX047729

PATIENT
  Sex: Female

DRUGS (2)
  1. 0.9% SODIUM CHLORIDE INJECTION [Suspect]
     Indication: FLUSHING
     Route: 042
     Dates: start: 20131125
  2. ADENOSINE [Suspect]
     Indication: CARDIAC STRESS TEST
     Route: 042
     Dates: start: 20131125

REACTIONS (2)
  - Device occlusion [Recovered/Resolved]
  - Heart rate irregular [Recovered/Resolved]
